FAERS Safety Report 23755540 (Version 3)
Quarter: 2024Q3

REPORT INFORMATION
  Report Type: Spontaneous
  Country: JP (occurrence: JP)
  Receive Date: 20240418
  Receipt Date: 20240829
  Transmission Date: 20241017
  Serious: Yes (Other)
  Sender: ASTELLAS
  Company Number: JP-ASTELLAS-2024JP002498

PATIENT
  Age: 91 Year
  Sex: Female

DRUGS (10)
  1. MIRABEGRON [Suspect]
     Active Substance: MIRABEGRON
     Indication: Hypertonic bladder
     Dosage: 50 MG, ONCE DAILY(AFTER BREAKFAST)
     Route: 048
     Dates: start: 20220608, end: 20240415
  2. MIRABEGRON [Suspect]
     Active Substance: MIRABEGRON
     Route: 065
  3. MEXITIL [Suspect]
     Active Substance: MEXILETINE HYDROCHLORIDE
     Indication: Arrhythmia
     Dosage: UNK UNK, AS NEEDED
     Route: 048
     Dates: start: 20240411
  4. NEXIUM [Suspect]
     Active Substance: ESOMEPRAZOLE MAGNESIUM
     Indication: Product used for unknown indication
     Dosage: UNK UNK, ONCE DAILY, AFTER BREAKFAST
     Route: 048
  5. DILTIAZEM HYDROCHLORIDE [Suspect]
     Active Substance: DILTIAZEM HYDROCHLORIDE
     Indication: Product used for unknown indication
     Dosage: UNK UNK, ONCE DAILY, AFTER BREAKFAST
     Route: 048
  6. ASPIRIN [Concomitant]
     Active Substance: ASPIRIN
     Indication: Product used for unknown indication
     Dosage: UNK UNK, ONCE DAILY, AFTER BREAKFAST
     Route: 048
  7. PRAVASTATIN SODIUM [Concomitant]
     Active Substance: PRAVASTATIN SODIUM
     Indication: Product used for unknown indication
     Dosage: 10 MG, TWICE DAILY, AFTER MEALS IN THE MORNING AND EVENING
     Route: 048
  8. TEPRENONE [Concomitant]
     Active Substance: TEPRENONE
     Indication: Product used for unknown indication
     Dosage: UNK UNK, ONCE DAILY, AFTER BREAKFAST
     Route: 048
  9. HERBALS [Concomitant]
     Active Substance: HERBALS
     Indication: Product used for unknown indication
     Dosage: UNK UNK, ONCE DAILY, IN THE MORNING
     Route: 048
  10. Depas [Concomitant]
     Indication: Product used for unknown indication
     Dosage: UNK UNK, ONCE DAILY, AT BEDTIME
     Route: 048

REACTIONS (2)
  - Arrhythmia [Unknown]
  - Hypersensitivity [Unknown]

NARRATIVE: CASE EVENT DATE: 20240412
